FAERS Safety Report 11349219 (Version 2)
Quarter: 2015Q3

REPORT INFORMATION
  Report Type: Spontaneous
  Country: US (occurrence: US)
  Receive Date: 20150807
  Receipt Date: 20150827
  Transmission Date: 20151125
  Serious: Yes (Hospitalization, Other)
  Sender: FDA-Public Use
  Company Number: US-ROCHE-1615501

PATIENT
  Sex: Male
  Weight: 93.52 kg

DRUGS (1)
  1. GAZYVA [Suspect]
     Active Substance: OBINUTUZUMAB
     Indication: CHRONIC LYMPHOCYTIC LEUKAEMIA
     Dosage: (100+900)
     Route: 042
     Dates: start: 20150427

REACTIONS (9)
  - Diarrhoea [Recovered/Resolved]
  - Headache [Recovered/Resolved]
  - White blood cell count decreased [Recovering/Resolving]
  - Nausea [Recovered/Resolved]
  - Infusion site discomfort [Unknown]
  - Vomiting [Recovered/Resolved]
  - Nasopharyngitis [Recovered/Resolved]
  - Platelet count decreased [Unknown]
  - Chills [Recovered/Resolved]
